FAERS Safety Report 10063753 (Version 3)
Quarter: 2015Q1

REPORT INFORMATION
  Report Type: Spontaneous
  Country: US (occurrence: US)
  Receive Date: 20140408
  Receipt Date: 20150216
  Transmission Date: 20150720
  Serious: Yes (Hospitalization)
  Sender: FDA-Public Use
  Company Number: US-ROCHE-1378966

PATIENT
  Age: 93 Year
  Sex: Female

DRUGS (6)
  1. LEVETIRACETAM. [Suspect]
     Active Substance: LEVETIRACETAM
     Indication: EPILEPSY
     Route: 065
  2. AMLODIPINE [Concomitant]
     Active Substance: AMLODIPINE BESYLATE
     Route: 065
  3. LATANOPROST. [Concomitant]
     Active Substance: LATANOPROST
  4. PILOCARPINE [Concomitant]
     Active Substance: PILOCARPINE
  5. RANIBIZUMAB [Suspect]
     Active Substance: RANIBIZUMAB
     Indication: AGE-RELATED MACULAR DEGENERATION
     Route: 050
  6. BETAXOLOL EYE DROPS [Concomitant]

REACTIONS (3)
  - Fall [Unknown]
  - Delirium [Not Recovered/Not Resolved]
  - Sedation [Unknown]
